FAERS Safety Report 5807671-3 (Version None)
Quarter: 2008Q3

REPORT INFORMATION
  Report Type: 
  Country: None (occurrence: None)
  Receive Date: 20080711
  Receipt Date: 20080703
  Transmission Date: 20090109
  Serious: Yes (Other)
  Sender: FDA-Public Use
  Company Number: GB-WYE-G01810908

PATIENT
  Sex: Male

DRUGS (1)
  1. TORISEL [Suspect]
     Dosage: UNKNOWN
     Dates: start: 20080401

REACTIONS (3)
  - DYSPNOEA [None]
  - PNEUMONITIS [None]
  - PULMONARY EMBOLISM [None]
